FAERS Safety Report 5046508-X (Version None)
Quarter: 2006Q2

REPORT INFORMATION
  Report Type: 
  Country: None (occurrence: None)
  Receive Date: 20060629
  Receipt Date: 20060615
  Transmission Date: 20061013
  Serious: Yes (Other)
  Sender: FDA-Public Use
  Company Number: 2006077731

PATIENT
  Age: 56 Year
  Sex: Male
  Weight: 117.9352 kg

DRUGS (5)
  1. NEURONTIN [Suspect]
     Indication: DIABETIC NEUROPATHY
     Dosage: 300 MG (100 MG, 1 D),
     Dates: start: 20060101
  2. CYMBALTA [Suspect]
     Indication: NEUROPATHY
     Dates: start: 20060101
  3. INSULIN [Concomitant]
  4. ALLOPURINOL [Concomitant]
  5. ANTIHYPERTENSIVES (ANTIHYPERTENSIVES) [Concomitant]

REACTIONS (2)
  - DIFFICULTY IN WALKING [None]
  - DRUG INEFFECTIVE [None]
